FAERS Safety Report 11844696 (Version 1)
Quarter: 2015Q4

REPORT INFORMATION
  Report Type: Spontaneous
  Country: None (occurrence: None)
  Receive Date: 20151216
  Receipt Date: 20151216
  Transmission Date: 20160305
  Serious: Yes (Other)
  Sender: FDA-Public Use
  Company Number: None

PATIENT
  Age: 38 Year
  Sex: Female
  Weight: 68.04 kg

DRUGS (3)
  1. LUPRON [Suspect]
     Active Substance: LEUPROLIDE ACETATE
     Indication: ENDOMETRIOSIS
     Route: 030
     Dates: start: 20151112
  2. LUPRON [Suspect]
     Active Substance: LEUPROLIDE ACETATE
     Indication: PREOPERATIVE CARE
     Route: 030
     Dates: start: 20151112
  3. LUPRON [Suspect]
     Active Substance: LEUPROLIDE ACETATE
     Indication: HYSTERECTOMY
     Route: 030
     Dates: start: 20151112

REACTIONS (4)
  - Condition aggravated [None]
  - Impaired work ability [None]
  - Migraine [None]
  - Impaired driving ability [None]

NARRATIVE: CASE EVENT DATE: 20151112
